FAERS Safety Report 22033042 (Version 1)
Quarter: 2023Q1

REPORT INFORMATION
  Report Type: Spontaneous
  Country: US (occurrence: None)
  Receive Date: 20230221
  Receipt Date: 20230221
  Transmission Date: 20230417
  Serious: Yes (Death)
  Sender: FDA-Public Use
  Company Number: None

PATIENT
  Age: 88 Year
  Sex: Male

DRUGS (1)
  1. POMALYST [Suspect]
     Active Substance: POMALIDOMIDE
     Indication: Plasma cell myeloma
     Dosage: FREQUENCY : DAILY;?
     Route: 048
     Dates: start: 20210218, end: 20221222

REACTIONS (10)
  - Dyspnoea [None]
  - Dyspnoea exertional [None]
  - Oxygen saturation decreased [None]
  - Orthostatic hypotension [None]
  - Dehydration [None]
  - Blood urea abnormal [None]
  - Blood creatine abnormal [None]
  - Prerenal failure [None]
  - Dizziness [None]
  - Cardio-respiratory arrest [None]

NARRATIVE: CASE EVENT DATE: 20221228
